FAERS Safety Report 9267093 (Version 1)
Quarter: 2013Q2

REPORT INFORMATION
  Report Type: Spontaneous
  Country: US (occurrence: US)
  Receive Date: 20130502
  Receipt Date: 20130502
  Transmission Date: 20140414
  Serious: Yes (Other)
  Sender: FDA-Public Use
  Company Number: US-PFIZER INC-2013134467

PATIENT
  Sex: Female

DRUGS (3)
  1. XELJANZ [Suspect]
     Dosage: 5 MG, 2X/DAY
  2. METHOTREXATE SODIUM [Suspect]
     Dosage: 15 MG, WEEKLY
  3. PREDNISONE [Suspect]
     Dosage: 5 MG, 1X/DAY

REACTIONS (1)
  - Pneumonia [Recovering/Resolving]
